FAERS Safety Report 12425853 (Version 1)
Quarter: 2016Q2

REPORT INFORMATION
  Report Type: Spontaneous
  Country: CA (occurrence: CA)
  Receive Date: 20160601
  Receipt Date: 20160601
  Transmission Date: 20160815
  Serious: No
  Sender: FDA-Public Use
  Company Number: CA-PROMETHEUS LABORATORIES-2015PL000141

PATIENT
  Sex: Male

DRUGS (1)
  1. PROLEUKIN [Suspect]
     Active Substance: ALDESLEUKIN
     Indication: METASTATIC MALIGNANT MELANOMA
     Dosage: 4 MILLION IU, EVERY 2 WEEKS
     Route: 026

REACTIONS (6)
  - Erythema [Recovering/Resolving]
  - Fatigue [Recovering/Resolving]
  - Injection site urticaria [Unknown]
  - Skin lesion [Recovering/Resolving]
  - Injection site discomfort [Unknown]
  - Malaise [Recovering/Resolving]
